FAERS Safety Report 11070635 (Version 1)
Quarter: 2015Q2

REPORT INFORMATION
  Report Type: Spontaneous
  Country: SE (occurrence: SE)
  Receive Date: 20150427
  Receipt Date: 20150427
  Transmission Date: 20150821
  Serious: Yes (Hospitalization)
  Sender: FDA-Public Use
  Company Number: SE-TEVA-556894ISR

PATIENT
  Age: 56 Year
  Sex: Female

DRUGS (1)
  1. SERTRALINE [Suspect]
     Active Substance: SERTRALINE HYDROCHLORIDE

REACTIONS (5)
  - Cardiac discomfort [Unknown]
  - Paraesthesia [Unknown]
  - Abdominal discomfort [Unknown]
  - Asthenia [Unknown]
  - Dizziness [Unknown]
